FAERS Safety Report 8418679-6 (Version None)
Quarter: 2012Q2

REPORT INFORMATION
  Report Type: 
  Country: None (occurrence: None)
  Receive Date: 20120531
  Receipt Date: 20120516
  Transmission Date: 20120825
  Serious: Yes (Life-Threatening, Other)
  Sender: FDA-Public Use
  Company Number: 2012MPI00187

PATIENT
  Age: 25 Year
  Sex: Female

DRUGS (1)
  1. BRENTUXIMAB VEDOTIN (BRENTUXIMAB VEDOTIN) INJECTION [Suspect]
     Indication: HODGKIN'S DISEASE REFRACTORY
     Dosage: 1.8 MG/KG, QCYCLE, INTRAVENOUS
     Route: 042
     Dates: start: 20110504, end: 20120228

REACTIONS (7)
  - ACUTE MYELOID LEUKAEMIA [None]
  - RHINOVIRUS INFECTION [None]
  - ARTHRALGIA [None]
  - HODGKIN'S DISEASE REFRACTORY [None]
  - RIB FRACTURE [None]
  - NEOPLASM PROGRESSION [None]
  - TREATMENT RELATED SECONDARY MALIGNANCY [None]
